FAERS Safety Report 5824051-5 (Version None)
Quarter: 2008Q3

REPORT INFORMATION
  Report Type: 
  Country: None (occurrence: None)
  Receive Date: 20080728
  Receipt Date: 20080718
  Transmission Date: 20090109
  Serious: Yes (Other)
  Sender: FDA-Public Use
  Company Number: JP-BRISTOL-MYERS SQUIBB COMPANY-14277370

PATIENT
  Age: 24 Year
  Sex: Female

DRUGS (5)
  1. ENDOXAN [Suspect]
     Indication: BONE SARCOMA
     Route: 065
     Dates: start: 19930101
  2. VINCRISTINE SULFATE [Suspect]
     Indication: BONE SARCOMA
     Route: 065
     Dates: start: 19930101
  3. DOXORUBICIN HCL [Suspect]
     Indication: BONE SARCOMA
     Route: 065
     Dates: start: 19930101
  4. DACTINOMYCIN [Suspect]
     Indication: BONE SARCOMA
     Route: 065
     Dates: start: 19930101
  5. METHOTREXATE [Suspect]
     Indication: BONE SARCOMA
     Route: 065
     Dates: start: 19930101

REACTIONS (1)
  - BREAST CANCER [None]
